FAERS Safety Report 21313604 (Version 3)
Quarter: 2022Q3

REPORT INFORMATION
  Report Type: Report from Study
  Country: ES (occurrence: ES)
  Receive Date: 20220909
  Receipt Date: 20220922
  Transmission Date: 20221027
  Serious: Yes (Hospitalization)
  Sender: FDA-Public Use
  Company Number: ES-GSK-ES2022128286

PATIENT

DRUGS (14)
  1. BELANTAMAB MAFODOTIN [Suspect]
     Active Substance: BELANTAMAB MAFODOTIN
     Indication: Plasma cell myeloma refractory
     Dosage: 2.5 MG, CYC, DELIVERED AS IV INFUSION, INFUSED OVER 30-60 MINUTES, C1 D1
     Route: 042
     Dates: start: 20220215, end: 20220215
  2. BELANTAMAB MAFODOTIN [Suspect]
     Active Substance: BELANTAMAB MAFODOTIN
     Dosage: 2.5 MG, CYC, DELIVERED AS IV INFUSION, INFUSED OVER 30-60 MINUTES, C2 C36
     Route: 042
     Dates: start: 20220517, end: 20220517
  3. DEXKETOPROFEN [Concomitant]
     Active Substance: DEXKETOPROFEN
     Indication: Pathological fracture
     Dosage: 20 MG, SINGLE
     Route: 042
     Dates: start: 20220906, end: 20220906
  4. PANTOPRAZOLE SODIUM [Concomitant]
     Active Substance: PANTOPRAZOLE SODIUM
     Indication: Acidosis
     Dosage: 40 MG, SINGLE
     Route: 042
     Dates: start: 20220906, end: 20220906
  5. ACETAMINOPHEN [Concomitant]
     Active Substance: ACETAMINOPHEN
     Indication: Pathological fracture
     Dosage: 1 G, SINGLE
     Route: 042
     Dates: start: 20220906, end: 20220906
  6. CEFAZOLIN [Concomitant]
     Active Substance: CEFAZOLIN
     Indication: Antibiotic prophylaxis
     Dosage: UNK UNK, SINGLE
     Route: 042
     Dates: start: 20220906, end: 20220906
  7. ROCURONIUM [Concomitant]
     Active Substance: ROCURONIUM BROMIDE
     Indication: Pathological fracture
     Dosage: 50 MG, SINGLE
     Route: 042
     Dates: start: 20220906, end: 20220906
  8. PROPOFOL [Concomitant]
     Active Substance: PROPOFOL
     Indication: Pathological fracture
     Dosage: 250 MG, SINGLE
     Route: 042
     Dates: start: 20220906, end: 20220906
  9. LIDOCAINE [Concomitant]
     Active Substance: LIDOCAINE
     Indication: Pathological fracture
     Dosage: 40 MG, SINGLE
     Route: 042
     Dates: start: 20220906, end: 20220906
  10. FENTANYL [Concomitant]
     Active Substance: FENTANYL
     Indication: Pathological fracture
     Dosage: 150 ?G, SINGLE
     Route: 042
     Dates: start: 20220906, end: 20220906
  11. MEPIVACAINE [Concomitant]
     Active Substance: MEPIVACAINE HYDROCHLORIDE
     Indication: Cervical plexus lesion
     Dosage: 4 ML, SINGLE
     Route: 042
     Dates: start: 20220906, end: 20220906
  12. MEPIVACAINE [Concomitant]
     Active Substance: MEPIVACAINE HYDROCHLORIDE
     Indication: Pathological fracture
     Dosage: 6 ML, SINGLE
     Route: 042
     Dates: start: 20220906, end: 20220906
  13. TRIAMCINOLONE ACETONIDE [Concomitant]
     Active Substance: TRIAMCINOLONE ACETONIDE
     Indication: Pathological fracture
     Dosage: 20 MG, SINGLE
     Route: 042
     Dates: start: 20220906, end: 20220906
  14. LEVOBUPIVACAINE [Concomitant]
     Active Substance: LEVOBUPIVACAINE
     Indication: Pathological fracture
     Dosage: 10 ML SINGLE
     Route: 042
     Dates: start: 20220906, end: 20220906

REACTIONS (1)
  - Pathological fracture [Recovered/Resolved]

NARRATIVE: CASE EVENT DATE: 20220906
